FAERS Safety Report 8079601-8 (Version None)
Quarter: 2012Q1

REPORT INFORMATION
  Report Type: 
  Country: None (occurrence: None)
  Receive Date: 20120124
  Receipt Date: 20120116
  Transmission Date: 20120608
  Serious: Yes (Hospitalization, Other)
  Sender: FDA-Public Use
  Company Number: 2012MA000806

PATIENT
  Age: 57 Year
  Sex: Male
  Weight: 73 kg

DRUGS (17)
  1. CARBAMAZEPINE [Concomitant]
  2. FINASTERIDE [Concomitant]
  3. BASILIXIMAB [Concomitant]
  4. CARBAMAZEPINE [Concomitant]
  5. TAMSULOSIN HCL [Concomitant]
  6. PHENOBARBITAL [Concomitant]
  7. FOKIC ACID [Concomitant]
  8. OMEPRAZOLE [Concomitant]
  9. PHENOBARBITAL TAB [Suspect]
     Dosage: 64.8 MG;BID
  10. TACROLIMUS [Suspect]
     Dosage: 3 MG;BID
  11. MYCOPHENOLATE MOFETIL [Concomitant]
  12. PREDNISONE TAB [Concomitant]
  13. LEVETIRACETAM [Concomitant]
  14. EZETIMIBE [Concomitant]
  15. SIMVASTATIN [Concomitant]
  16. WARFARIN SODIUM [Concomitant]
  17. METHYLPREDNISOLONE [Concomitant]

REACTIONS (3)
  - DRUG LEVEL BELOW THERAPEUTIC [None]
  - INHIBITORY DRUG INTERACTION [None]
  - KIDNEY TRANSPLANT REJECTION [None]
